FAERS Safety Report 22284158 (Version 6)
Quarter: 2024Q1

REPORT INFORMATION
  Report Type: Spontaneous
  Country: US (occurrence: US)
  Receive Date: 20230504
  Receipt Date: 20240208
  Transmission Date: 20240410
  Serious: No
  Sender: FDA-Public Use
  Company Number: US-SA-SAC20230502000458

PATIENT
  Age: 60 Year
  Sex: Female

DRUGS (20)
  1. DUPIXENT [Suspect]
     Active Substance: DUPILUMAB
     Indication: Asthma
     Dosage: 2 DF, 1X
     Route: 058
  2. DUPIXENT [Suspect]
     Active Substance: DUPILUMAB
     Dosage: 1 DF, QOW
     Route: 058
     Dates: start: 20230324, end: 20230615
  3. FAMOTIDINE [Concomitant]
     Active Substance: FAMOTIDINE
     Dosage: UNK
  4. GLIPIZIDE [Concomitant]
     Active Substance: GLIPIZIDE
     Dosage: UNK
  5. HYDROXYCHLOROQUINE [Concomitant]
     Active Substance: HYDROXYCHLOROQUINE
     Dosage: UNK
  6. ESCITALOPRAM [Concomitant]
     Active Substance: ESCITALOPRAM OXALATE
     Dosage: UNK
  7. BUDESONIDE [Concomitant]
     Active Substance: BUDESONIDE
     Dosage: UNK
  8. ATORVASTATIN [Concomitant]
     Active Substance: ATORVASTATIN
     Dosage: UNK
  9. ALBUTEROL [Concomitant]
     Active Substance: ALBUTEROL
     Dosage: UNK
  10. PREDNISONE [Concomitant]
     Active Substance: PREDNISONE
     Dosage: UNK
  11. TRIAMTERENE [Concomitant]
     Active Substance: TRIAMTERENE
     Dosage: UNK
  12. METOPROLOL [Concomitant]
     Active Substance: METOPROLOL
     Dosage: UNK
  13. LISINOPRIL [Concomitant]
     Active Substance: LISINOPRIL
     Dosage: UNK
  14. METFORMIN [Concomitant]
     Active Substance: METFORMIN HYDROCHLORIDE
     Dosage: UNK
  15. CYANOCOBALAMIN [Concomitant]
     Active Substance: CYANOCOBALAMIN
     Dosage: UNK
  16. LATANOPROST [Concomitant]
     Active Substance: LATANOPROST
     Dosage: UNK
  17. VITAMIN D3 [Concomitant]
     Active Substance: CHOLECALCIFEROL
     Dosage: UNK
  18. DOXYCYCLINE [Concomitant]
     Active Substance: DOXYCYCLINE
  19. ARFORMOTEROL [Concomitant]
     Active Substance: ARFORMOTEROL
  20. COSOPT [Concomitant]
     Active Substance: DORZOLAMIDE HYDROCHLORIDE\TIMOLOL MALEATE

REACTIONS (7)
  - Headache [Unknown]
  - Weight decreased [Unknown]
  - Decreased appetite [Unknown]
  - Nasopharyngitis [Recovering/Resolving]
  - Sinusitis [Not Recovered/Not Resolved]
  - Toothache [Unknown]
  - Asthma [Unknown]

NARRATIVE: CASE EVENT DATE: 20230101
